FAERS Safety Report 7928637-3 (Version None)
Quarter: 2011Q4

REPORT INFORMATION
  Report Type: 
  Country: None (occurrence: None)
  Receive Date: 20111118
  Receipt Date: 20111107
  Transmission Date: 20120403
  Serious: Yes (Other)
  Sender: FDA-Public Use
  Company Number: GB-MYLANLABS-2011S1022927

PATIENT
  Age: 49 Year
  Sex: Male
  Weight: 100 kg

DRUGS (6)
  1. BUSPIRONE [Concomitant]
     Indication: ANXIETY
     Route: 048
  2. ZOPICLONE [Concomitant]
     Indication: SLEEP DISORDER
     Route: 048
  3. FLUOXETINE [Concomitant]
     Indication: DEPRESSION
     Route: 048
  4. DIAZEPAM [Concomitant]
     Indication: DRUG DEPENDENCE
     Route: 048
  5. PROPRANOLOL [Concomitant]
     Indication: ANXIETY
     Route: 048
  6. RISPERIDONE [Suspect]
     Indication: AFFECTIVE DISORDER
     Route: 048
     Dates: start: 20110901, end: 20110930

REACTIONS (1)
  - NOCTURIA [None]
